FAERS Safety Report 15947972 (Version 1)
Quarter: 2019Q1

REPORT INFORMATION
  Report Type: Spontaneous
  Country: US (occurrence: US)
  Receive Date: 20190212
  Receipt Date: 20190212
  Transmission Date: 20190417
  Serious: Yes (Life-Threatening, Hospitalization)
  Sender: FDA-Public Use
  Company Number: None

PATIENT
  Age: 77 Year
  Sex: Male
  Weight: 83.8 kg

DRUGS (1)
  1. APIXABAN [Suspect]
     Active Substance: APIXABAN
     Indication: ANTICOAGULANT THERAPY
     Route: 048
     Dates: start: 20180714, end: 20190201

REACTIONS (5)
  - Dizziness [None]
  - Haematemesis [None]
  - Asthenia [None]
  - Hypotension [None]
  - Diarrhoea haemorrhagic [None]

NARRATIVE: CASE EVENT DATE: 20190201
